FAERS Safety Report 6672129-9 (Version None)
Quarter: 2010Q2

REPORT INFORMATION
  Report Type: 
  Country: None (occurrence: None)
  Receive Date: 20100407
  Receipt Date: 20100407
  Transmission Date: 20101027
  Serious: Yes (Hospitalization)
  Sender: FDA-Public Use
  Company Number: None

PATIENT
  Age: 56 Year
  Sex: Male
  Weight: 100 kg

DRUGS (2)
  1. HEPARIN [Suspect]
     Dosage: 1500-1750 UNITS PER HOUR IV DRIP
     Route: 041
     Dates: start: 20090428, end: 20090429
  2. HEPARIN [Suspect]
     Indication: THROMBOSIS PROPHYLAXIS
     Dosage: 5000 UNITS Q8H SQ
     Route: 058
     Dates: start: 20090430, end: 20090501

REACTIONS (4)
  - HEPARIN-INDUCED THROMBOCYTOPENIA [None]
  - RENAL FAILURE ACUTE [None]
  - THROMBOSIS [None]
  - TOE AMPUTATION [None]
